FAERS Safety Report 5095707-X (Version None)
Quarter: 2006Q3

REPORT INFORMATION
  Report Type: 
  Country: None (occurrence: None)
  Receive Date: 20060731
  Receipt Date: 20060414
  Transmission Date: 20061208
  Serious: No
  Sender: FDA-Public Use
  Company Number: 2006PV012141

PATIENT
  Age: 60 Year
  Sex: Female
  Weight: 71.2147 kg

DRUGS (5)
  1. BYETTA [Suspect]
     Indication: DIABETES MELLITUS NON-INSULIN-DEPENDENT
     Dosage: 10 MCG; BID; SC, SEE IMAGE
     Route: 058
     Dates: start: 20060101, end: 20060301
  2. BYETTA [Suspect]
     Indication: DIABETES MELLITUS NON-INSULIN-DEPENDENT
     Dosage: 10 MCG; BID; SC, SEE IMAGE
     Route: 058
     Dates: start: 20060301
  3. METFORMIN HCL [Concomitant]
  4. GLYBURIDE [Concomitant]
  5. AVANDIA [Concomitant]

REACTIONS (3)
  - CONSTIPATION [None]
  - VOMITING [None]
  - WEIGHT DECREASED [None]
